FAERS Safety Report 4502313-1 (Version None)
Quarter: 2004Q4

REPORT INFORMATION
  Report Type: 
  Country: None (occurrence: None)
  Receive Date: 20041110
  Receipt Date: 20041027
  Transmission Date: 20050328
  Serious: Yes (Hospitalization)
  Sender: FDA-Public Use
  Company Number: 200410556BFR

PATIENT
  Age: 76 Year
  Sex: Male
  Weight: 65 kg

DRUGS (10)
  1. IZILOX           (MOXIFLOXACIN HYDROCHLORIDE) [Suspect]
     Indication: BRONCHITIS
     Dosage: I400 MG, TOTAL DAILY, ORAL
     Route: 048
     Dates: start: 20040331
  2. SINTROM [Suspect]
     Dosage: 2 MG, QD, ORAL
     Route: 048
     Dates: start: 20031001, end: 20040403
  3. PREDNISOLONE [Suspect]
     Dosage: SEE IMAGE, ORAL
     Route: 048
     Dates: start: 20040331, end: 20040401
  4. PREDNISOLONE [Suspect]
     Dosage: SEE IMAGE, ORAL
     Route: 048
     Dates: start: 20040402, end: 20040403
  5. PREDNISOLONE [Suspect]
     Dosage: SEE IMAGE, ORAL
     Route: 048
     Dates: start: 20040404
  6. MODOPAR [Concomitant]
  7. VASTAREL [Concomitant]
  8. GLUCOPHAGE [Concomitant]
  9. ATENOLOL [Concomitant]
  10. HYTACAND [Concomitant]

REACTIONS (14)
  - BRONCHITIS [None]
  - CEREBRAL HAEMATOMA [None]
  - CEREBRAL HAEMORRHAGE [None]
  - DILATATION VENTRICULAR [None]
  - DRUG INTERACTION [None]
  - EXTENSOR PLANTAR RESPONSE [None]
  - FALL [None]
  - HEMIPARESIS [None]
  - HYPERTENSION [None]
  - LUNG DISORDER [None]
  - MOTOR DYSFUNCTION [None]
  - PROTHROMBIN LEVEL DECREASED [None]
  - RESPIRATORY FAILURE [None]
  - SOMNOLENCE [None]
